FAERS Safety Report 14082157 (Version 2)
Quarter: 2017Q4

REPORT INFORMATION
  Report Type: Spontaneous
  Country: US (occurrence: US)
  Receive Date: 20171013
  Receipt Date: 20171116
  Transmission Date: 20180321
  Serious: No
  Sender: FDA-Public Use
  Company Number: US-SAOL THERAPEUTICS-2017SAO01567

PATIENT
  Sex: Female

DRUGS (10)
  1. CLONIDINE. [Suspect]
     Active Substance: CLONIDINE
     Dosage: 0.161 MG, \DAY
     Route: 037
     Dates: start: 20171005
  2. BACLOFEN. [Suspect]
     Active Substance: BACLOFEN
     Indication: SPINAL CORD INJURY
  3. CLONIDINE. [Suspect]
     Active Substance: CLONIDINE
     Dosage: 0.145 MG, \DAY
     Route: 037
     Dates: end: 20171005
  4. BUPIVACAINE. [Suspect]
     Active Substance: BUPIVACAINE
     Dosage: 5.81 MG, \DAY
     Route: 037
     Dates: start: 20171005
  5. BACLOFEN. [Suspect]
     Active Substance: BACLOFEN
     Indication: MUSCLE SPASTICITY
     Dosage: 290.5 ?G, \DAY
     Route: 037
     Dates: end: 20171005
  6. MORPHINE [Suspect]
     Active Substance: MORPHINE
     Dosage: 0.21 MG, \DAY
     Route: 037
     Dates: start: 20171005
  7. BACLOFEN. [Suspect]
     Active Substance: BACLOFEN
     Indication: MUSCLE SPASTICITY
     Dosage: 290.5 ?G, \DAY
     Route: 037
     Dates: start: 20171005
  8. BUPIVACAINE. [Suspect]
     Active Substance: BUPIVACAINE
     Dosage: 5.23 MG, \DAY
     Route: 037
     Dates: end: 20171005
  9. BACLOFEN. [Suspect]
     Active Substance: BACLOFEN
     Indication: SPINAL CORD INJURY
  10. MORPHINE [Suspect]
     Active Substance: MORPHINE
     Dosage: 0.189 MG, \DAY
     Route: 037
     Dates: end: 20171005

REACTIONS (4)
  - Injury [Recovering/Resolving]
  - Hypotonia [Recovering/Resolving]
  - Pelvic fracture [Recovering/Resolving]
  - Pain [Recovering/Resolving]

NARRATIVE: CASE EVENT DATE: 2017
